FAERS Safety Report 15884574 (Version 1)
Quarter: 2019Q1

REPORT INFORMATION
  Report Type: Spontaneous
  Country: US (occurrence: US)
  Receive Date: 20190129
  Receipt Date: 20190129
  Transmission Date: 20190417
  Serious: Yes (Hospitalization)
  Sender: FDA-Public Use
  Company Number: None

PATIENT
  Age: 55 Year
  Sex: Female

DRUGS (12)
  1. BRIVIACT [Concomitant]
     Active Substance: BRIVARACETAM
  2. CALTRATE+D [Concomitant]
  3. FLUTICASONE. [Concomitant]
     Active Substance: FLUTICASONE
  4. AMANTADINE. [Concomitant]
     Active Substance: AMANTADINE HYDROCHLORIDE
  5. DALFAMPRIDINE. [Suspect]
     Active Substance: DALFAMPRIDINE
     Indication: MULTIPLE SCLEROSIS
     Route: 048
     Dates: start: 20100709
  6. BACLOFEN. [Concomitant]
     Active Substance: BACLOFEN
  7. PANTOPRAZOLE [Concomitant]
     Active Substance: PANTOPRAZOLE
  8. FUROSEMIDE. [Concomitant]
     Active Substance: FUROSEMIDE
  9. XARELTO [Concomitant]
     Active Substance: RIVAROXABAN
  10. MULTIVITAMIN [Concomitant]
     Active Substance: VITAMINS
  11. OLMESA MEDOX [Concomitant]
  12. VIIBRYD [Concomitant]
     Active Substance: VILAZODONE HYDROCHLORIDE

REACTIONS (1)
  - Ankle fracture [None]

NARRATIVE: CASE EVENT DATE: 20190113
